FAERS Safety Report 5423331-5 (Version None)
Quarter: 2007Q3

REPORT INFORMATION
  Report Type: 
  Country: None (occurrence: None)
  Receive Date: 20070823
  Receipt Date: 20070817
  Transmission Date: 20080115
  Serious: Yes (Other)
  Sender: FDA-Public Use
  Company Number: PHEH2007US11237

PATIENT
  Age: 51 Year
  Sex: Female
  Weight: 62.585 kg

DRUGS (11)
  1. ESTRADERM [Suspect]
     Indication: MENOPAUSE
     Dosage: 0.05 MG/DAY, UNK
     Route: 062
  2. VIVELLE [Suspect]
     Indication: MENOPAUSE
     Route: 062
     Dates: start: 19960101
  3. ESTRATEST [Suspect]
     Indication: MENOPAUSE
     Dates: start: 19940101, end: 19950101
  4. ESTRATEST [Suspect]
     Dates: start: 19960101, end: 19970101
  5. PROVERA [Suspect]
     Indication: MENOPAUSE
     Dates: start: 19940101, end: 19950101
  6. MPA [Suspect]
     Indication: MENOPAUSE
     Dosage: 2.5 MG, UNK
     Dates: start: 19950101, end: 19970101
  7. PREMARIN [Suspect]
     Indication: MENOPAUSE
     Dosage: 0.625 MG/DAY, UNK
     Dates: start: 19970101
  8. CLARITIN [Suspect]
     Indication: SEASONAL ALLERGY
     Dosage: UNK, UNK
     Route: 048
     Dates: start: 19960101, end: 20040101
  9. EFFEXOR [Suspect]
     Indication: MENOPAUSAL SYMPTOMS
     Dates: start: 20001201, end: 20010101
  10. PREMPRO [Suspect]
     Indication: MENOPAUSE
     Dosage: 0.625 MG/2.5 MG/DAY, UNK
     Dates: start: 19970101, end: 20000101
  11. FOSAMAX [Suspect]
     Indication: OSTEOPOROSIS

REACTIONS (16)
  - ARTHRALGIA [None]
  - BIOPSY [None]
  - BIOPSY BREAST ABNORMAL [None]
  - BREAST CANCER [None]
  - DYSPNOEA [None]
  - MAMMOGRAM ABNORMAL [None]
  - MUSCULOSKELETAL PAIN [None]
  - NASAL SEPTUM DEVIATION [None]
  - OSTEOPOROSIS [None]
  - PELVIC PAIN [None]
  - ROTATOR CUFF SYNDROME [None]
  - SEPTOPLASTY [None]
  - SINUSITIS [None]
  - SURGERY [None]
  - ULTRASOUND SCAN ABNORMAL [None]
  - UTERINE LEIOMYOMA [None]
